FAERS Safety Report 4632309-0 (Version None)
Quarter: 2005Q2

REPORT INFORMATION
  Report Type: 
  Country: None (occurrence: None)
  Receive Date: 20050331
  Receipt Date: 20040526
  Transmission Date: 20051028
  Serious: Yes (Hospitalization)
  Sender: FDA-Public Use
  Company Number: 200412616BCC

PATIENT
  Age: 89 Year
  Sex: Female
  Weight: 62.5964 kg

DRUGS (2)
  1. ALEVE [Suspect]
     Indication: ARTHRITIS
     Dosage: 440 MG, QD, ORAL
     Route: 048
     Dates: start: 20040514, end: 20040523
  2. ASPIRIN [Suspect]
     Dosage: 81 MG, HS, ORAL
     Route: 048

REACTIONS (4)
  - FEELING ABNORMAL [None]
  - GASTRIC HAEMORRHAGE [None]
  - GASTRIC ULCER [None]
  - HAEMATEMESIS [None]
